FAERS Safety Report 6895176-0 (Version None)
Quarter: 2010Q3

REPORT INFORMATION
  Report Type: 
  Country: None (occurrence: None)
  Receive Date: 20100802
  Receipt Date: 20100720
  Transmission Date: 20110219
  Serious: Yes (Hospitalization, Other)
  Sender: FDA-Public Use
  Company Number: PHHY2010GB19014

PATIENT
  Sex: Male

DRUGS (6)
  1. CLOZARIL [Suspect]
     Indication: SCHIZOPHRENIA
     Dosage: 600 MG
     Route: 048
     Dates: start: 20081208
  2. VENLAFAXINE [Concomitant]
     Dosage: 225 MG
     Route: 048
  3. VALPROATE SODIUM [Concomitant]
     Dosage: 750 MG, BID
     Route: 048
  4. DIAZEPAM [Concomitant]
     Dosage: 2 MG
     Route: 048
  5. HYOSCINE HBR HYT [Concomitant]
     Dosage: 600 MG
     Route: 048
  6. DOMPERIDONE [Concomitant]
     Dosage: 10 MG
     Route: 048

REACTIONS (4)
  - HAEMATEMESIS [None]
  - HAEMOGLOBIN DECREASED [None]
  - OESOPHAGITIS [None]
  - VOMITING [None]
